FAERS Safety Report 8138686-0 (Version None)
Quarter: 2012Q1

REPORT INFORMATION
  Report Type: 
  Country: None (occurrence: None)
  Receive Date: 20120215
  Receipt Date: 20120209
  Transmission Date: 20120608
  Serious: Yes (Hospitalization)
  Sender: FDA-Public Use
  Company Number: CN-ELI_LILLY_AND_COMPANY-CN201201005742

PATIENT
  Age: 65 Year
  Sex: Male

DRUGS (2)
  1. BYETTA [Suspect]
     Indication: DIABETES MELLITUS
     Dosage: UNK, UNKNOWN
     Route: 058
     Dates: start: 20110601
  2. HUMALOG [Concomitant]
     Dosage: 10 UG, UNKNOWN

REACTIONS (6)
  - RENAL FAILURE [None]
  - VOMITING [None]
  - NAUSEA [None]
  - COMA [None]
  - BLOOD GLUCOSE INCREASED [None]
  - OFF LABEL USE [None]
